FAERS Safety Report 10061687 (Version 1)
Quarter: 2014Q2

REPORT INFORMATION
  Report Type: Spontaneous
  Country: US (occurrence: None)
  Receive Date: 20140404
  Receipt Date: 20140404
  Transmission Date: 20141212
  Serious: Yes (Other)
  Sender: FDA-Public Use
  Company Number: None

PATIENT
  Age: 67 Year
  Sex: Female
  Weight: 61.24 kg

DRUGS (2)
  1. NASACORT ALLERGY 24 HR [Suspect]
     Indication: SINUSITIS
     Route: 055
     Dates: start: 20140325, end: 20140326
  2. NASACORT ALLERGY 24 HR [Suspect]
     Indication: PRODUCTIVE COUGH
     Route: 055
     Dates: start: 20140325, end: 20140326

REACTIONS (9)
  - Nausea [None]
  - Asthenia [None]
  - Anosmia [None]
  - Ageusia [None]
  - Dysgeusia [None]
  - Migraine with aura [None]
  - Paranasal sinus discomfort [None]
  - Sinus headache [None]
  - Condition aggravated [None]
